FAERS Safety Report 7635390-X (Version None)
Quarter: 2011Q3

REPORT INFORMATION
  Report Type: 
  Country: None (occurrence: None)
  Receive Date: 20110718
  Receipt Date: 20110630
  Transmission Date: 20111222
  Serious: Yes (Hospitalization)
  Sender: FDA-Public Use
  Company Number: PYR-11-01

PATIENT
  Age: 84 Year
  Sex: Male

DRUGS (4)
  1. ISONIAZID [Concomitant]
  2. RIFAMPICIN [Concomitant]
  3. PYRAZINAMIDE [Suspect]
     Indication: PULMONARY TUBERCULOSIS
  4. ETHAMBUTOL HYDROCHLORIDE [Concomitant]

REACTIONS (2)
  - ERYTHEMA MULTIFORME [None]
  - EOSINOPHILIA [None]
